FAERS Safety Report 15733775 (Version 3)
Quarter: 2019Q1

REPORT INFORMATION
  Report Type: Report from Study
  Country: BR (occurrence: BR)
  Receive Date: 20181218
  Receipt Date: 20190109
  Transmission Date: 20190417
  Serious: Yes (Other)
  Sender: FDA-Public Use
  Company Number: BR-BRISTOL-MYERS SQUIBB COMPANY-BMS-2018-082359

PATIENT
  Sex: Female

DRUGS (6)
  1. LEXOTAN [Concomitant]
     Active Substance: BROMAZEPAM
     Indication: PRODUCT USED FOR UNKNOWN INDICATION
     Route: 065
  2. FOLIC ACID. [Concomitant]
     Active Substance: FOLIC ACID
     Indication: PRODUCT USED FOR UNKNOWN INDICATION
     Route: 065
  3. ABATACEPT [Suspect]
     Active Substance: ABATACEPT
     Indication: RHEUMATOID ARTHRITIS
     Dosage: 750 MG, QMO
     Route: 042
  4. METHOTREXATE. [Concomitant]
     Active Substance: METHOTREXATE
     Indication: PRODUCT USED FOR UNKNOWN INDICATION
     Route: 065
  5. SERTRALINE [Concomitant]
     Active Substance: SERTRALINE HYDROCHLORIDE
     Indication: PRODUCT USED FOR UNKNOWN INDICATION
     Route: 065
  6. LEVOID [Concomitant]
     Active Substance: LEVOTHYROXINE
     Indication: PRODUCT USED FOR UNKNOWN INDICATION
     Route: 065

REACTIONS (14)
  - Malaise [Recovered/Resolved]
  - Feeding disorder [Unknown]
  - Kidney infection [Unknown]
  - Abdominal pain upper [Recovered/Resolved]
  - Fibromyalgia [Recovered/Resolved]
  - Mouth injury [Unknown]
  - Gastrooesophageal reflux disease [Unknown]
  - Back pain [Recovered/Resolved]
  - Stomatitis [Unknown]
  - Cough [Unknown]
  - Nausea [Unknown]
  - Urinary tract infection [Recovered/Resolved]
  - Gastrointestinal infection [Recovered/Resolved]
  - Diarrhoea [Recovered/Resolved]
